FAERS Safety Report 9407701 (Version 4)
Quarter: 2014Q2

REPORT INFORMATION
  Report Type: Spontaneous
  Country: US (occurrence: US)
  Receive Date: 20130718
  Receipt Date: 20140523
  Transmission Date: 20141212
  Serious: Yes (Other)
  Sender: FDA-Public Use
  Company Number: US-PFIZER INC-2013210920

PATIENT
  Age: 70 Year
  Sex: Female
  Weight: 65.76 kg

DRUGS (2)
  1. LYRICA [Suspect]
     Indication: NEURALGIA
     Dosage: 50 MG, 4X/DAY
     Dates: start: 2013
  2. DIAZEPAM [Concomitant]
     Indication: ESSENTIAL TREMOR
     Dosage: 5 MG, 2X/DAY

REACTIONS (4)
  - Coma [Unknown]
  - Hypersomnia [Not Recovered/Not Resolved]
  - Migraine [Unknown]
  - Somnolence [Not Recovered/Not Resolved]
